FAERS Safety Report 22253179 (Version 1)
Quarter: 2023Q2

REPORT INFORMATION
  Report Type: Other
  Country: IE (occurrence: None)
  Receive Date: 20230426
  Receipt Date: 20230426
  Transmission Date: 20230721
  Serious: Yes (Other)
  Sender: FDA-Public Use
  Company Number: IE-ROCHE-3331888

PATIENT
  Sex: Male

DRUGS (1)
  1. OCREVUS [Suspect]
     Active Substance: OCRELIZUMAB
     Indication: Multiple sclerosis
     Dosage: 600MGS X 2 VIALS 300MGS
     Route: 042

REACTIONS (3)
  - Therapeutic response shortened [Unknown]
  - Sinusitis [Unknown]
  - Fatigue [Unknown]
